FAERS Safety Report 4952742-7 (Version None)
Quarter: 2006Q1

REPORT INFORMATION
  Report Type: 
  Country: None (occurrence: None)
  Receive Date: 20060320
  Receipt Date: 20060308
  Transmission Date: 20060701
  Serious: Yes (Hospitalization, Disabling)
  Sender: FDA-Public Use
  Company Number: 222875

PATIENT
  Age: 68 Year
  Sex: Male
  Weight: 101 kg

DRUGS (1)
  1. RITUXAN (RITUXIMAB) CONC FOR SOLUTIO FOR INFUSION [Suspect]
     Indication: MANTLE CELL LYMPHOMA
     Dosage: 375 MG/M2, SINGLE, INTRAVENOUS
     Route: 042
     Dates: start: 20051107

REACTIONS (6)
  - C-REACTIVE PROTEIN INCREASED [None]
  - POLYARTHRITIS [None]
  - PYREXIA [None]
  - RASH [None]
  - RED BLOOD CELL SEDIMENTATION RATE INCREASED [None]
  - SERUM SICKNESS [None]
